FAERS Safety Report 24323188 (Version 1)
Quarter: 2024Q3

REPORT INFORMATION
  Report Type: Spontaneous
  Country: US (occurrence: None)
  Receive Date: 20240913
  Receipt Date: 20240913
  Transmission Date: 20241017
  Serious: Yes (Disabling)
  Sender: Public
  Company Number: None

PATIENT
  Age: 31 Year
  Sex: Male
  Weight: 72 kg

DRUGS (1)
  1. DOXYCYCLINE [Suspect]
     Active Substance: DOXYCYCLINE\DOXYCYCLINE HYCLATE
     Indication: Testicular pain
     Dates: start: 20211130, end: 20211203

REACTIONS (2)
  - Intracranial pressure increased [None]
  - Adverse drug reaction [None]

NARRATIVE: CASE EVENT DATE: 20211201
